FAERS Safety Report 10983246 (Version 1)
Quarter: 2015Q1

REPORT INFORMATION
  Report Type: Spontaneous
  Country: CA (occurrence: None)
  Receive Date: 20150302
  Receipt Date: 20150302
  Transmission Date: 20150721
  Serious: Yes (Other)
  Sender: FDA-Public Use
  Company Number: 2014SYM00041

PATIENT
  Age: 81 Year
  Sex: Female
  Weight: 87 kg

DRUGS (15)
  1. FENTANYL. [Concomitant]
     Active Substance: FENTANYL
  2. PREGABALIN. [Concomitant]
     Active Substance: PREGABALIN
  3. SULFATRIM (SULFAMETHOXAZOLE, TRIMETHOPRIM) [Concomitant]
  4. FERROUS SULFATE [Concomitant]
     Active Substance: FERROUS SULFATE\FERROUS SULFATE, DRIED
  5. AMLODIPINE [Concomitant]
     Active Substance: AMLODIPINE BESYLATE
  6. SENOKOT (SENNA ALEXANDRINA) [Concomitant]
  7. EXEMESTANE. [Concomitant]
     Active Substance: EXEMESTANE
  8. LEVETIRACETAM. [Concomitant]
     Active Substance: LEVETIRACETAM
  9. OXYCODONE [Concomitant]
     Active Substance: OXYCODONE
  10. DOCUSATE SODIUM. [Concomitant]
     Active Substance: DOCUSATE SODIUM
  11. METOPROLOL [Concomitant]
     Active Substance: METOPROLOL
  12. ACEON [Suspect]
     Active Substance: PERINDOPRIL ERBUMINE
     Indication: PRODUCT USED FOR UNKNOWN INDICATION
     Route: 048
  13. ACETAMINOPHEN. [Concomitant]
     Active Substance: ACETAMINOPHEN
  14. ASAPHEN (ACETYLSALICYLIC ACID) [Concomitant]
  15. PANTOPRAZOLE [Concomitant]
     Active Substance: PANTOPRAZOLE SODIUM

REACTIONS (1)
  - Angioedema [None]

NARRATIVE: CASE EVENT DATE: 2014
